FAERS Safety Report 9556203 (Version 3)
Quarter: 2013Q4

REPORT INFORMATION
  Report Type: Spontaneous
  Country: US (occurrence: US)
  Receive Date: 20130926
  Receipt Date: 20131018
  Transmission Date: 20140711
  Serious: Yes (Hospitalization)
  Sender: FDA-Public Use
  Company Number: US-DENDREON CORPORATION-2013PROUSA03156

PATIENT
  Age: 64 Year
  Sex: Male

DRUGS (15)
  1. PROVENGE [Suspect]
     Indication: PROSTATE CANCER METASTATIC
     Dosage: 250 ML, SINGLE
     Route: 042
     Dates: start: 20130822, end: 20130822
  2. PROVENGE [Suspect]
     Dosage: 250 ML, SINGLE
     Route: 042
     Dates: start: 20130906, end: 20130906
  3. GLUCOPHAGE [Concomitant]
     Indication: DIABETES MELLITUS
     Dosage: 1000 MG, BID
  4. NOVOLIN [Concomitant]
     Indication: DIABETES MELLITUS
     Dosage: 70U IN MORNING, 40U AT NIGHT
     Route: 058
  5. NOVOLOG [Concomitant]
     Indication: DIABETES MELLITUS
     Dosage: SLIDING SCALE
  6. ASPIRIN [Concomitant]
     Dosage: 81 MG, QD
  7. BENAZEPRIL HCL [Concomitant]
     Dosage: 40 MG, QD
  8. CALCIUM [Concomitant]
  9. DILTIAZEM [Concomitant]
     Dosage: 120 MG, BID
  10. FISH OIL [Concomitant]
  11. FLUOXETINE [Concomitant]
     Dosage: 20 MG, QD
  12. NEURONTIN [Concomitant]
     Dosage: 600 MG, TID
  13. HYDROCHLOROTHIAZIDE [Concomitant]
     Dosage: 12.5 MG, UNK
  14. METOPROLOL TARTRATE [Concomitant]
     Dosage: 50 MG, BID
  15. VITAMIN D [Concomitant]

REACTIONS (3)
  - Acute myocardial infarction [Recovered/Resolved]
  - Rectal haemorrhage [Recovered/Resolved]
  - Hyponatraemia [Unknown]
